FAERS Safety Report 20288755 (Version 1)
Quarter: 2022Q1

REPORT INFORMATION
  Report Type: Spontaneous
  Country: US (occurrence: US)
  Receive Date: 20220104
  Receipt Date: 20220104
  Transmission Date: 20220423
  Serious: Yes (Other)
  Sender: FDA-Public Use
  Company Number: US-009507513-2112USA010187

PATIENT
  Age: 75 Year
  Sex: Male

DRUGS (8)
  1. KEYTRUDA [Suspect]
     Active Substance: PEMBROLIZUMAB
     Indication: Malignant melanoma stage IV
     Dosage: 200 MILLIGRAM, Q3W
     Dates: start: 201812, end: 201911
  2. PREDNISONE [Suspect]
     Active Substance: PREDNISONE
     Indication: Myasthenia gravis
     Dosage: 10 MILLIGRAM, QD
     Dates: start: 2018
  3. PREDNISONE [Suspect]
     Active Substance: PREDNISONE
     Dosage: 13.5 MILLIGRAM, QD
     Dates: start: 201812
  4. PREDNISONE [Suspect]
     Active Substance: PREDNISONE
     Dosage: 60 MILLIGRAM, QD
     Dates: start: 201902
  5. PREDNISONE [Suspect]
     Active Substance: PREDNISONE
     Dosage: 13 MILLIGRAM, QD
     Dates: start: 2019
  6. PREDNISONE [Suspect]
     Active Substance: PREDNISONE
     Dosage: 60 MILLIGRAM, QD
     Dates: start: 201904
  7. PREDNISONE [Suspect]
     Active Substance: PREDNISONE
     Dosage: 13 MILLIGRAM, QD
     Dates: start: 2019
  8. PREDNISONE [Suspect]
     Active Substance: PREDNISONE
     Dosage: 12-15 MG OF PREDNISONE DAILY
     Dates: start: 2019

REACTIONS (2)
  - Immune-mediated enterocolitis [Recovered/Resolved]
  - Contraindicated product administered [Unknown]

NARRATIVE: CASE EVENT DATE: 20181201
